FAERS Safety Report 5653070-7 (Version None)
Quarter: 2008Q1

REPORT INFORMATION
  Report Type: 
  Country: None (occurrence: None)
  Receive Date: 20080306
  Receipt Date: 20080227
  Transmission Date: 20080703
  Serious: Yes (Hospitalization, Other)
  Sender: FDA-Public Use
  Company Number: PHNU2007DE01757

PATIENT
  Age: 58 Year
  Sex: Male
  Weight: 70.5 kg

DRUGS (17)
  1. DESFERAL [Suspect]
     Indication: HAEMOSIDEROSIS
     Dosage: 2 G/DAY, QD
     Route: 058
     Dates: start: 20070413, end: 20070503
  2. SANDIMMUNE [Concomitant]
     Route: 065
  3. IMUREK [Concomitant]
     Route: 065
  4. BENZBROMARONE [Concomitant]
     Route: 048
  5. ASPIRIN [Concomitant]
     Route: 065
  6. PANTOZOL [Concomitant]
     Route: 065
  7. PRAVASTATIN SODIUM [Concomitant]
     Route: 065
  8. EZETROL [Concomitant]
     Route: 048
  9. FUROSEMIDE [Concomitant]
     Route: 065
  10. ISOPTIN [Concomitant]
     Route: 065
  11. DECORTIN-H [Concomitant]
     Route: 048
  12. MARCUMAR [Concomitant]
     Route: 048
  13. CANDESARTAN CILEXETIL [Concomitant]
  14. CARVEDILOL [Concomitant]
  15. DARBEPOETIN ALFA [Concomitant]
  16. BLOOD TRANSFUSION, AUXILIARY PRODUCTS [Concomitant]
  17. WARFARIN SODIUM [Concomitant]

REACTIONS (15)
  - BIOPSY KIDNEY ABNORMAL [None]
  - BLOOD CREATININE INCREASED [None]
  - BLOOD UREA INCREASED [None]
  - CARDIAC MURMUR [None]
  - CHRONIC ALLOGRAFT NEPHROPATHY [None]
  - CONDITION AGGRAVATED [None]
  - CREATININE RENAL CLEARANCE DECREASED [None]
  - HEART RATE IRREGULAR [None]
  - KIDNEY FIBROSIS [None]
  - PROTEINURIA [None]
  - RENAL IMPAIRMENT [None]
  - RENAL TUBULAR ATROPHY [None]
  - RENAL TUBULAR DISORDER [None]
  - SKIN ATROPHY [None]
  - SKIN DISCOLOURATION [None]
